FAERS Safety Report 9914539 (Version 3)
Quarter: 2014Q1

REPORT INFORMATION
  Report Type: Report from Study
  Country: ES (occurrence: ES)
  Receive Date: 20140220
  Receipt Date: 20140318
  Transmission Date: 20141002
  Serious: Yes (Death)
  Sender: FDA-Public Use
  Company Number: ES-EXELIXIS-XL18414004015

PATIENT
  Age: 61 Year
  Sex: Male
  Weight: 87 kg

DRUGS (7)
  1. XL184 [Suspect]
     Indication: RENAL CELL CARCINOMA
     Dosage: 60 MG, QD
     Route: 048
     Dates: start: 20131113, end: 20140213
  2. TRAMADOL [Concomitant]
  3. ORFIDAL [Concomitant]
  4. IBUPROFENO [Concomitant]
  5. OMEPRAZOL [Concomitant]
  6. PREDNISONA [Concomitant]
  7. RAMIPRIL [Concomitant]

REACTIONS (1)
  - Death [Fatal]
